FAERS Safety Report 7792050-2 (Version None)
Quarter: 2011Q4

REPORT INFORMATION
  Report Type: 
  Country: None (occurrence: None)
  Receive Date: 20111003
  Receipt Date: 20110926
  Transmission Date: 20120403
  Serious: Yes (Other)
  Sender: FDA-Public Use
  Company Number: US-AMGEN-USASP2011049751

PATIENT
  Sex: Male

DRUGS (1)
  1. ENBREL [Suspect]
     Indication: RHEUMATOID ARTHRITIS
     Dosage: 25 MG, QWK
     Dates: start: 20050503

REACTIONS (8)
  - NODULE [None]
  - TESTICULAR MASS [None]
  - RASH ERYTHEMATOUS [None]
  - ARTHRALGIA [None]
  - RHEUMATOID ARTHRITIS [None]
  - DRY SKIN [None]
  - TESTICULAR DISORDER [None]
  - INJECTION SITE PAIN [None]
